FAERS Safety Report 15831253 (Version 1)
Quarter: 2019Q1

REPORT INFORMATION
  Report Type: Spontaneous
  Country: DE (occurrence: DE)
  Receive Date: 20190116
  Receipt Date: 20190116
  Transmission Date: 20190417
  Serious: Yes (Hospitalization)
  Sender: FDA-Public Use
  Company Number: DE-TEVA-2019-DE-999077

PATIENT
  Age: 59 Year
  Sex: Male

DRUGS (2)
  1. BISOPROLOL RATIO 3.75 MG [Suspect]
     Active Substance: BISOPROLOL
     Indication: CARDIOVERSION
  2. BISOPROLOL RATIO 3.75 MG [Suspect]
     Active Substance: BISOPROLOL
     Indication: CARDIAC FAILURE
     Dosage: 3.75 MILLIGRAM DAILY; USED FOR YEARS, 3.75 MG ONCE DAILY
     Route: 048
     Dates: end: 20181203

REACTIONS (1)
  - Ventricular arrhythmia [Recovered/Resolved]

NARRATIVE: CASE EVENT DATE: 20181128
